FAERS Safety Report 4524867-1 (Version None)
Quarter: 2004Q4

REPORT INFORMATION
  Report Type: 
  Country: None (occurrence: None)
  Receive Date: 20041117
  Receipt Date: 20040107
  Transmission Date: 20050328
  Serious: Yes (Other)
  Sender: FDA-Public Use
  Company Number: 2004S1000070

PATIENT
  Age: 53 Year
  Sex: Female

DRUGS (2)
  1. CLOZAPINE [Suspect]
     Dosage: 25MG Q HS, ORAL
     Route: 048
     Dates: start: 20030920, end: 20031001
  2. CLOZAPINE [Suspect]
     Dosage: 200MG, Q HS, ORAL
     Route: 048
     Dates: start: 20030920, end: 20031001

REACTIONS (1)
  - LEUKOPENIA [None]
